FAERS Safety Report 8589694-7 (Version None)
Quarter: 2012Q3

REPORT INFORMATION
  Report Type: 
  Country: None (occurrence: None)
  Receive Date: 20120813
  Receipt Date: 20120802
  Transmission Date: 20120928
  Serious: Yes (Other)
  Sender: FDA-Public Use
  Company Number: CN-ASTRAZENECA-2012SE55367

PATIENT
  Sex: Male
  Weight: 46 kg

DRUGS (4)
  1. PROPOFOL [Suspect]
     Indication: OESOPHAGEAL CARCINOMA
     Route: 042
     Dates: start: 20090512, end: 20090512
  2. SUXAMETHONIUM CHLORIDE [Concomitant]
     Indication: OESOPHAGEAL CARCINOMA
     Route: 041
     Dates: start: 20090512, end: 20090512
  3. ROCURONIUM BROMIDE [Concomitant]
     Indication: OESOPHAGEAL CARCINOMA
     Route: 041
     Dates: start: 20090512, end: 20090512
  4. MIDAZOLAM [Concomitant]
     Indication: OESOPHAGEAL CARCINOMA
     Route: 041
     Dates: start: 20090512, end: 20090512

REACTIONS (1)
  - ANAPHYLACTIC SHOCK [None]
